FAERS Safety Report 6315131-9 (Version None)
Quarter: 2009Q3

REPORT INFORMATION
  Report Type: 
  Country: None (occurrence: None)
  Receive Date: 20090819
  Receipt Date: 20090814
  Transmission Date: 20100115
  Serious: Yes (Disabling)
  Sender: FDA-Public Use
  Company Number: US-ASTRAZENECA-2009SE08225

PATIENT
  Age: 25243 Day
  Sex: Male
  Weight: 89.8 kg

DRUGS (3)
  1. CRESTOR [Suspect]
     Indication: BLOOD CHOLESTEROL
     Route: 048
     Dates: start: 20070906
  2. FISH OIL, VITAMINS E [Concomitant]
     Route: 048
     Dates: start: 20030407
  3. LISINOPRIL [Concomitant]
     Indication: HYPERTENSION
     Route: 048
     Dates: start: 19790707

REACTIONS (1)
  - BACK PAIN [None]
